FAERS Safety Report 8338421-7 (Version None)
Quarter: 2012Q2

REPORT INFORMATION
  Report Type: 
  Country: None (occurrence: None)
  Receive Date: 20120504
  Receipt Date: 20120427
  Transmission Date: 20120825
  Serious: Yes (Death)
  Sender: FDA-Public Use
  Company Number: US-CELGENEUS-163-21880-12043223

PATIENT
  Sex: Female
  Weight: 57.658 kg

DRUGS (10)
  1. ASPIRIN [Concomitant]
     Dosage: 81 MILLIGRAM
     Route: 065
  2. ATORVASTATIN CALCIUM [Concomitant]
     Dosage: 40 MILLIGRAM
     Route: 065
  3. DIGOXIN [Concomitant]
     Dosage: 250 MICROGRAM
     Route: 065
  4. REVLIMID [Suspect]
     Indication: MULTIPLE MYELOMA
     Dosage: 25 MILLIGRAM
     Route: 048
     Dates: start: 20120308
  5. OMEPRAZOLE [Concomitant]
     Dosage: 20 MILLIGRAM
     Route: 065
  6. LEVOTHYROXINE SODIUM [Concomitant]
     Dosage: 250 MICROGRAM
     Route: 065
  7. REVLIMID [Suspect]
     Dosage: 15 MILLIGRAM
     Route: 048
     Dates: end: 20120405
  8. ASACOL [Concomitant]
     Dosage: 400 MILLIGRAM
     Route: 065
  9. METOPROLOL TARTRATE [Concomitant]
     Dosage: 25 MILLIGRAM
     Route: 065
  10. TORSEMIDE [Concomitant]
     Dosage: 20 MILLIGRAM
     Route: 065

REACTIONS (3)
  - DEATH [None]
  - DECREASED APPETITE [None]
  - DYSPHAGIA [None]
